FAERS Safety Report 20312428 (Version 1)
Quarter: 2022Q1

REPORT INFORMATION
  Report Type: Spontaneous
  Country: US (occurrence: None)
  Receive Date: 20220107
  Receipt Date: 20220107
  Transmission Date: 20220423
  Serious: Yes (Hospitalization)
  Sender: FDA-Public Use
  Company Number: None

PATIENT
  Age: 87 Year
  Sex: Female

DRUGS (1)
  1. BAMLANIVIMAB\ETESEVIMAB [Suspect]
     Active Substance: BAMLANIVIMAB\ETESEVIMAB
     Indication: COVID-19
     Route: 042
     Dates: start: 20211227, end: 20211227

REACTIONS (8)
  - Cardiac failure congestive [None]
  - Condition aggravated [None]
  - Acute respiratory failure [None]
  - COVID-19 pneumonia [None]
  - Hypokalaemia [None]
  - Hyponatraemia [None]
  - Pulmonary embolism [None]
  - Pleural effusion [None]

NARRATIVE: CASE EVENT DATE: 20220103
